FAERS Safety Report 8387489-0 (Version None)
Quarter: 2012Q2

REPORT INFORMATION
  Report Type: 
  Country: None (occurrence: None)
  Receive Date: 20120525
  Receipt Date: 20120521
  Transmission Date: 20120825
  Serious: Yes (Hospitalization)
  Sender: FDA-Public Use
  Company Number: PHHY2012BR044554

PATIENT
  Age: 57 Year
  Sex: Female

DRUGS (3)
  1. LOTIGREL [Concomitant]
     Indication: CARDIAC DISORDER
     Dosage: 75 MG, QD
  2. DIOVAN HCT [Suspect]
     Dosage: 320/12.5MG
     Route: 048
  3. APRESOLINE [Suspect]
     Dosage: 50 MG, UNK
     Route: 048

REACTIONS (4)
  - BLOOD PRESSURE INCREASED [None]
  - CEREBROVASCULAR ACCIDENT [None]
  - HEADACHE [None]
  - FEELING ABNORMAL [None]
